FAERS Safety Report 12429514 (Version 1)
Quarter: 2016Q2

REPORT INFORMATION
  Report Type: Spontaneous
  Country: US (occurrence: US)
  Receive Date: 20160602
  Receipt Date: 20160602
  Transmission Date: 20160815
  Serious: Yes (Death)
  Sender: FDA-Public Use
  Company Number: US-FRI-1000085096

PATIENT
  Age: 85 Year
  Sex: Female

DRUGS (1)
  1. NAMENDA XR [Suspect]
     Active Substance: MEMANTINE HYDROCHLORIDE
     Indication: DEMENTIA ALZHEIMER^S TYPE
     Dosage: 14MG
     Route: 048
     Dates: end: 20160521

REACTIONS (2)
  - Death [Fatal]
  - Dementia [Fatal]

NARRATIVE: CASE EVENT DATE: 20160521
